FAERS Safety Report 18069339 (Version 1)
Quarter: 2020Q3

REPORT INFORMATION
  Report Type: Spontaneous
  Country: HR (occurrence: HR)
  Receive Date: 20200725
  Receipt Date: 20200725
  Transmission Date: 20201103
  Serious: Yes (Other)
  Sender: FDA-Public Use
  Company Number: NVSC2020HR204980

PATIENT
  Age: 74 Year
  Sex: Female

DRUGS (3)
  1. NORMABEL [Suspect]
     Active Substance: DIAZEPAM
     Indication: PRODUCT USED FOR UNKNOWN INDICATION
     Dosage: 80 MG, QD (16 X 5 MG)
     Route: 048
     Dates: start: 20200509, end: 20200509
  2. RISSET [Suspect]
     Active Substance: RISPERIDONE
     Indication: PRODUCT USED FOR UNKNOWN INDICATION
     Dosage: 40 MG, QD (20 X 2 MG)
     Route: 048
     Dates: start: 20200509, end: 20200509
  3. TEGRETOL XR [Suspect]
     Active Substance: CARBAMAZEPINE
     Indication: PRODUCT USED FOR UNKNOWN INDICATION
     Dosage: 800 MG, QD (2 X 400 MG)
     Route: 048
     Dates: start: 20200509, end: 20200509

REACTIONS (5)
  - Depressed level of consciousness [Unknown]
  - Suicide attempt [Unknown]
  - Sedation [Unknown]
  - Intentional overdose [Unknown]
  - Somnolence [Unknown]

NARRATIVE: CASE EVENT DATE: 20200509
